FAERS Safety Report 6858003-3 (Version None)
Quarter: 2010Q3

REPORT INFORMATION
  Report Type: 
  Country: None (occurrence: None)
  Receive Date: 20100715
  Receipt Date: 20100702
  Transmission Date: 20110219
  Serious: Yes (Death, Other)
  Sender: FDA-Public Use
  Company Number: 2010AP001222

PATIENT
  Age: 27 Year
  Sex: Female

DRUGS (10)
  1. TIZANIDINE HYDROCHLORIDE [Suspect]
  2. AZITHROMYCIN [Suspect]
     Indication: UPPER RESPIRATORY TRACT INFECTION
  3. BUPROPION [Concomitant]
  4. TRAZODONE [Concomitant]
  5. ZOLPIDEM [Concomitant]
  6. FEXOFENADINE [Concomitant]
  7. TRAMADOL HYDROCHLORIDE [Concomitant]
  8. IBUPROFEN TABLETS [Concomitant]
  9. SUMATRIPTAN [Concomitant]
  10. BENZODIAZEPINE DERIVATIVES [Concomitant]

REACTIONS (8)
  - BLOOD POTASSIUM DECREASED [None]
  - CARDIAC ARREST [None]
  - COMA [None]
  - DRUG INTERACTION [None]
  - DRUG LEVEL INCREASED [None]
  - HYPOXIC-ISCHAEMIC ENCEPHALOPATHY [None]
  - TORSADE DE POINTES [None]
  - VENTRICULAR FIBRILLATION [None]
